FAERS Safety Report 6642896-9 (Version None)
Quarter: 2010Q1

REPORT INFORMATION
  Report Type: 
  Country: None (occurrence: None)
  Receive Date: 20100319
  Receipt Date: 20100305
  Transmission Date: 20100710
  Serious: Yes (Hospitalization, Other)
  Sender: FDA-Public Use
  Company Number: US-ELI_LILLY_AND_COMPANY-US201003002438

PATIENT
  Age: 71 Year
  Sex: Female

DRUGS (4)
  1. FORTEO [Suspect]
     Indication: OSTEOPOROSIS
     Dosage: 20 UG, UNK
     Dates: start: 20090101
  2. FENTANYL [Concomitant]
  3. RESTORIL [Concomitant]
  4. GLUCOSAMINE/MSM [Concomitant]

REACTIONS (9)
  - ARTERIAL THROMBOSIS LIMB [None]
  - DENTAL CARIES [None]
  - DRUG DOSE OMISSION [None]
  - GASTRIC DISORDER [None]
  - LIMB INJURY [None]
  - MALAISE [None]
  - PAIN [None]
  - SKIN DISCOLOURATION [None]
  - TOOTH DISORDER [None]
